FAERS Safety Report 9692613 (Version 3)
Quarter: 2013Q4

REPORT INFORMATION
  Report Type: Spontaneous
  Country: IT (occurrence: IT)
  Receive Date: 20131118
  Receipt Date: 20131203
  Transmission Date: 20140711
  Serious: Yes (Hospitalization)
  Sender: FDA-Public Use
  Company Number: PHHY2013IT130555

PATIENT
  Sex: Female

DRUGS (12)
  1. TASIGNA [Suspect]
     Indication: CHRONIC MYELOID LEUKAEMIA
     Dosage: 800 MG, DAILY
     Route: 048
     Dates: start: 20130528, end: 20131106
  2. TASIGNA [Suspect]
     Dosage: 200 MG, TID
     Route: 048
  3. ATORVASTATIN [Concomitant]
     Dosage: 10 MG, DAILY
  4. EUTIROX [Concomitant]
     Dosage: 75 UG, DAILY/HALF A DAY FOR SUNDAY AND WEDNESDAY
  5. METOPROLOL [Concomitant]
     Dosage: 25 MG, DAILY
     Route: 048
  6. NATECAL D3 [Concomitant]
  7. MIRTAZAPINE [Concomitant]
     Dosage: 0.25 MG, DAILY
  8. XILOL [Concomitant]
  9. LANSOPRAZOLE [Concomitant]
     Dosage: 30 MG, QD
  10. HYABAK [Concomitant]
     Dosage: 2 DROPS/EYE ONCE DAILY
  11. ROCALTROL [Concomitant]
     Route: 048
  12. CALCIUM CARBONATE [Concomitant]
     Dosage: 1 G, TID
     Dates: start: 20130811

REACTIONS (3)
  - Pulmonary embolism [Recovering/Resolving]
  - Pulmonary infarction [Recovering/Resolving]
  - Deep vein thrombosis [Recovering/Resolving]
